FAERS Safety Report 24458098 (Version 1)
Quarter: 2024Q4

REPORT INFORMATION
  Report Type: Report from Study
  Country: CN (occurrence: CN)
  Receive Date: 20241018
  Receipt Date: 20241018
  Transmission Date: 20250115
  Serious: No
  Sender: ROCHE
  Company Number: CN-BoehringerIngelheim-2023-BI-262722

PATIENT

DRUGS (2)
  1. ALTEPLASE [Suspect]
     Active Substance: ALTEPLASE
     Indication: Ischaemic stroke
     Dosage: THE TOTAL DOSE WAS BODY WEIGHT (KG) MULITPLY 0.9 MG, INTRAVENOUS BOLUS INJECTION WAS PERFORMED ACCOR
     Route: 040
  2. ALTEPLASE [Suspect]
     Active Substance: ALTEPLASE
     Dosage: THE REMAINING DOSE WAS INTRAVENOUSLY INFUSED WITHIN 1 H.
     Route: 042

REACTIONS (1)
  - Gastrointestinal haemorrhage [Unknown]
